FAERS Safety Report 21023026 (Version 1)
Quarter: 2022Q2

REPORT INFORMATION
  Report Type: Spontaneous
  Country: US (occurrence: None)
  Receive Date: 20220629
  Receipt Date: 20220629
  Transmission Date: 20220721
  Serious: Yes (Hospitalization)
  Sender: FDA-Public Use
  Company Number: None

PATIENT
  Age: 64 Year
  Sex: Male

DRUGS (1)
  1. IBUPROFEN [Suspect]
     Active Substance: IBUPROFEN
     Dosage: FREQUENCY : 3 TIMES A DAY;?
     Route: 048
     Dates: start: 20220502, end: 20220619

REACTIONS (4)
  - Abdominal pain upper [None]
  - Anaemia [None]
  - Malignant gastric ulcer [None]
  - Helicobacter gastritis [None]

NARRATIVE: CASE EVENT DATE: 20220619
